FAERS Safety Report 14947529 (Version 1)
Quarter: 2018Q2

REPORT INFORMATION
  Report Type: Spontaneous
  Country: US (occurrence: US)
  Receive Date: 20180529
  Receipt Date: 20180529
  Transmission Date: 20180711
  Serious: No
  Sender: FDA-Public Use
  Company Number: US-BAUSCH-BL-2017-023066

PATIENT
  Age: 43 Year
  Sex: Female
  Weight: 69.46 kg

DRUGS (2)
  1. PYRIDOSTIGMINE [Suspect]
     Active Substance: PYRIDOSTIGMINE
     Indication: MYASTHENIA GRAVIS
     Dosage: 18 YEARS PRIOR TO THE DATE OF THIS REPORT
     Route: 065
     Dates: start: 199912
  2. LORAZEPAM. [Concomitant]
     Active Substance: LORAZEPAM
     Indication: PRODUCT USED FOR UNKNOWN INDICATION

REACTIONS (1)
  - Affect lability [Not Recovered/Not Resolved]

NARRATIVE: CASE EVENT DATE: 201706
